FAERS Safety Report 8006073-1 (Version None)
Quarter: 2011Q4

REPORT INFORMATION
  Report Type: 
  Country: None (occurrence: None)
  Receive Date: 20111226
  Receipt Date: 20111219
  Transmission Date: 20120403
  Serious: Yes (Death, Hospitalization)
  Sender: FDA-Public Use
  Company Number: TW-ACCORD-011708

PATIENT
  Age: 86 Year
  Sex: Male

DRUGS (6)
  1. CLONAZEPAM [Suspect]
     Route: 048
  2. AMIODARONE [Concomitant]
     Route: 048
  3. LEVOFLOXACIN [Suspect]
     Indication: PNEUMONIA
  4. CEFTAZIDIME [Concomitant]
     Indication: PNEUMONIA
     Route: 042
  5. METHYLPREDNISOLONE [Concomitant]
     Route: 042
  6. FUROSEMIDE [Concomitant]
     Route: 042

REACTIONS (3)
  - DERMATITIS BULLOUS [None]
  - SEPTIC SHOCK [None]
  - RASH GENERALISED [None]
